FAERS Safety Report 9675881 (Version 1)
Quarter: 2013Q4

REPORT INFORMATION
  Report Type: Spontaneous
  Country: TR (occurrence: TR)
  Receive Date: 20131107
  Receipt Date: 20131107
  Transmission Date: 20140711
  Serious: Yes (Congenital Anomaly)
  Sender: FDA-Public Use
  Company Number: TR-GLAXOSMITHKLINE-B0939992A

PATIENT
  Age: 5 Day
  Sex: Female

DRUGS (5)
  1. SALBUTAMOL SULPHATE [Suspect]
     Indication: ASTHMA
     Route: 055
  2. IPRATROPIUM BROMIDE [Suspect]
     Indication: ASTHMA
     Route: 065
  3. MONTELUKAST SODIUM [Suspect]
     Indication: ASTHMA
     Dosage: 10MGD PER DAY
     Route: 065
  4. VITAMINS [Suspect]
     Indication: PRODUCT USED FOR UNKNOWN INDICATION
     Route: 065
  5. FOLIC ACID [Suspect]
     Indication: PRODUCT USED FOR UNKNOWN INDICATION
     Route: 065

REACTIONS (9)
  - Aplasia cutis congenita [Recovered/Resolved]
  - Skin necrosis [Recovered/Resolved]
  - Foetal exposure during pregnancy [Unknown]
  - Scab [Recovered/Resolved]
  - Alopecia [Unknown]
  - Hypertrichosis [Unknown]
  - Rash erythematous [Unknown]
  - Neck deformity [Unknown]
  - Hyperbilirubinaemia [Unknown]
